FAERS Safety Report 4349971-2 (Version None)
Quarter: 2004Q2

REPORT INFORMATION
  Report Type: 
  Country: None (occurrence: None)
  Receive Date: 20040426
  Receipt Date: 20030619
  Transmission Date: 20050107
  Serious: Yes (Other)
  Sender: FDA-Public Use
  Company Number: 200313708US

PATIENT
  Age: 84 Year
  Sex: Male
  Weight: 70 kg

DRUGS (4)
  1. ALLEGRA [Suspect]
     Indication: ANGIONEUROTIC OEDEMA
     Dosage: 180 MG QD PO
     Route: 048
     Dates: start: 20021015
  2. ALLEGRA [Suspect]
     Indication: URTICARIA
     Dosage: 180 MG QD PO
     Route: 048
     Dates: start: 20021015
  3. ALLEGRA [Suspect]
     Indication: ANGIONEUROTIC OEDEMA
     Dosage: 180 MG HS PO
     Route: 048
     Dates: end: 20030515
  4. ALLEGRA [Suspect]
     Indication: URTICARIA
     Dosage: 180 MG HS PO
     Route: 048
     Dates: end: 20030515

REACTIONS (8)
  - COUGH [None]
  - DYSGEUSIA [None]
  - EOSINOPHIL COUNT INCREASED [None]
  - HYPERSENSITIVITY [None]
  - NEUTROPHIL COUNT DECREASED [None]
  - RASH PRURITIC [None]
  - SOMNOLENCE [None]
  - VISION BLURRED [None]
